FAERS Safety Report 7319207-9 (Version None)
Quarter: 2011Q1

REPORT INFORMATION
  Report Type: 
  Country: None (occurrence: None)
  Receive Date: 20110214
  Receipt Date: 20101122
  Transmission Date: 20110831
  Serious: Yes (Hospitalization)
  Sender: FDA-Public Use
  Company Number: DSA_44931_2011

PATIENT
  Age: 79 Year
  Sex: Female

DRUGS (16)
  1. CALTRATE /00108001/ [Concomitant]
  2. KARVEA (KARVEA - IRBESARTAN) (150 MG, 75 MG) (NOT SPECIFIED) [Suspect]
     Indication: PRODUCT USED FOR UNKNOWN INDICATION
     Dosage: (DF) (DF)
     Dates: start: 20100101
  3. CARDIZEM [Concomitant]
  4. OSTELIN /00107901/ [Concomitant]
  5. LATANOPROST W/ TIMOLOL [Concomitant]
  6. XALATAN [Concomitant]
  7. VASOCARDOL (VASOCARDOL-DILTIAZEM HYDROCHLORIDE) (NOT SPECIFIED) [Suspect]
     Indication: HYPERTENSION
     Dosage: (180 MG 1X, AT 7 AM ORAL) (DF)
     Route: 048
     Dates: start: 20101122, end: 20101122
  8. ENDEP [Concomitant]
  9. OSTEOEZE ACTIVE [Concomitant]
  10. SOMAC [Concomitant]
  11. FUROSEMIDE [Concomitant]
  12. BRICANYL [Concomitant]
  13. ASPIRIN [Concomitant]
  14. SYSTANE [Concomitant]
  15. FORMOTEROL W/ BUDESONIDE [Concomitant]
  16. PANAMAX [Concomitant]

REACTIONS (3)
  - HEADACHE [None]
  - DIZZINESS [None]
  - DYSARTHRIA [None]
